FAERS Safety Report 14447867 (Version 1)
Quarter: 2018Q1

REPORT INFORMATION
  Report Type: Spontaneous
  Country: FR (occurrence: FR)
  Receive Date: 20180126
  Receipt Date: 20180126
  Transmission Date: 20180509
  Serious: Yes (Death, Hospitalization, Other)
  Sender: FDA-Public Use
  Company Number: FR-BAYER-2018-011010

PATIENT
  Sex: Male

DRUGS (4)
  1. STIVARGA [Suspect]
     Active Substance: REGORAFENIB
     Indication: ADENOCARCINOMA OF COLON
     Dosage: 40 MG, QID
     Dates: start: 201502
  2. STIVARGA [Suspect]
     Active Substance: REGORAFENIB
     Indication: METASTATIC LYMPHOMA
  3. STIVARGA [Suspect]
     Active Substance: REGORAFENIB
     Indication: METASTASES TO LIVER
  4. STIVARGA [Suspect]
     Active Substance: REGORAFENIB
     Indication: METASTASES TO LUNG

REACTIONS (9)
  - Metastases to liver [None]
  - Oedema peripheral [None]
  - Hepatic function abnormal [None]
  - Mucous membrane disorder [None]
  - Skin lesion [None]
  - General physical health deterioration [None]
  - Death [Fatal]
  - Ocular icterus [None]
  - Hepatomegaly [None]

NARRATIVE: CASE EVENT DATE: 201502
